FAERS Safety Report 8797732 (Version 3)
Quarter: 2013Q1

REPORT INFORMATION
  Report Type: Spontaneous
  Country: US (occurrence: US)
  Receive Date: 20120920
  Receipt Date: 20130102
  Transmission Date: 20140127
  Serious: No
  Sender: FDA-Public Use
  Company Number: US-009507513-1209USA002452

PATIENT
  Age: 57 Year
  Sex: Male
  Weight: 88.44 kg

DRUGS (8)
  1. VICTRELIS [Suspect]
     Dosage: 800 MG, TID, EVERY 7-9 HOURS
     Route: 048
  2. RIBAVIRIN [Suspect]
     Indication: HEPATITIS C
     Route: 048
  3. PEGASYS [Suspect]
     Indication: HEPATITIS C
     Dosage: UNK
  4. LUNESTA [Concomitant]
     Dosage: 2 MG, UNK
  5. HYDROCHLOROTHIAZIDE (+) LISINOPRIL [Concomitant]
     Dosage: 20-25 MG
  6. LYRICA [Concomitant]
     Dosage: 100 MG, UNK
  7. VITAMINS (UNSPECIFIED) [Concomitant]
  8. OMEGA-3 MARINE TRIGLYCERIDES [Concomitant]

REACTIONS (6)
  - Hypotension [Unknown]
  - White blood cell count decreased [Unknown]
  - Fatigue [Unknown]
  - Red blood cell count decreased [Unknown]
  - Pruritus [Unknown]
  - Dry skin [Unknown]
